FAERS Safety Report 7209452-5 (Version None)
Quarter: 2010Q4

REPORT INFORMATION
  Report Type: 
  Country: None (occurrence: None)
  Receive Date: 20101223
  Receipt Date: 20101216
  Transmission Date: 20110411
  Serious: Yes (Hospitalization)
  Sender: FDA-Public Use
  Company Number: TAJPN-10-0735

PATIENT
  Age: 74 Year
  Sex: Female

DRUGS (5)
  1. ABRAXANE [Suspect]
     Indication: BREAST CANCER METASTATIC
     Dosage: (400 MG)
     Dates: start: 20101115, end: 20101115
  2. OXYCONTIN [Concomitant]
  3. ARIMIDEX [Concomitant]
  4. HUMALOG [Concomitant]
  5. LANTUS [Concomitant]

REACTIONS (4)
  - ALTERED STATE OF CONSCIOUSNESS [None]
  - DIABETES MELLITUS INADEQUATE CONTROL [None]
  - GASTROINTESTINAL DISORDER [None]
  - HYPERGLYCAEMIA [None]
